FAERS Safety Report 12422172 (Version 1)
Quarter: 2016Q2

REPORT INFORMATION
  Report Type: Spontaneous
  Country: GB (occurrence: GB)
  Receive Date: 20160601
  Receipt Date: 20160601
  Transmission Date: 20160815
  Serious: Yes (Hospitalization, Other)
  Sender: FDA-Public Use
  Company Number: PHHY2016GB071539

PATIENT
  Age: 67 Year
  Sex: Male

DRUGS (1)
  1. LORAZEPAM. [Suspect]
     Active Substance: LORAZEPAM
     Indication: AGITATION
     Dosage: 4 MG
     Route: 065

REACTIONS (4)
  - Respiratory failure [Recovering/Resolving]
  - Confusional state [Recovering/Resolving]
  - Secretion discharge [Recovering/Resolving]
  - Hypercapnia [Recovering/Resolving]
